FAERS Safety Report 8362199 (Version 2)
Quarter: 2014Q1

REPORT INFORMATION
  Report Type: Spontaneous
  Country: US (occurrence: US)
  Receive Date: 20120130
  Receipt Date: 20140228
  Transmission Date: 20141002
  Serious: Yes (Hospitalization)
  Sender: FDA-Public Use
  Company Number: US-GLAXOSMITHKLINE-A0882319A

PATIENT
  Age: 54 Year
  Sex: Male
  Weight: 66.8 kg

DRUGS (1)
  1. AVANDIA [Suspect]
     Indication: DIABETES MELLITUS
     Route: 048
     Dates: start: 2003, end: 200705

REACTIONS (3)
  - Atrial fibrillation [Recovering/Resolving]
  - Cardiac disorder [Unknown]
  - Chest pain [Unknown]
